FAERS Safety Report 4549953-1 (Version None)
Quarter: 2005Q1

REPORT INFORMATION
  Report Type: 
  Country: None (occurrence: None)
  Receive Date: 20050112
  Receipt Date: 20050103
  Transmission Date: 20050727
  Serious: Yes (Hospitalization)
  Sender: FDA-Public Use
  Company Number: PHRM2005FR00445

PATIENT
  Age: 40 Year
  Sex: Male

DRUGS (4)
  1. TEGRETOL [Suspect]
     Indication: HERPES ZOSTER
     Route: 048
     Dates: start: 20030822, end: 20030905
  2. DAFALGAN [Suspect]
     Dosage: 3 G/DAY
     Route: 048
     Dates: start: 20030823, end: 20030904
  3. ZELITREX [Suspect]
     Indication: HERPES ZOSTER
     Dosage: 500 MG, TID
     Route: 048
     Dates: start: 20030822, end: 20030905
  4. ZAMUDOL [Suspect]
     Dosage: 100 MG, BID
     Route: 048
     Dates: start: 20030901, end: 20030905

REACTIONS (24)
  - AGITATION [None]
  - ANAEMIA [None]
  - ASPARTATE AMINOTRANSFERASE INCREASED [None]
  - CONJUNCTIVAL HYPERAEMIA [None]
  - CONJUNCTIVAL OEDEMA [None]
  - CONJUNCTIVITIS [None]
  - DERMATITIS EXFOLIATIVE [None]
  - ENTEROBACTER PNEUMONIA [None]
  - EYELID DISORDER [None]
  - INCREASED BRONCHIAL SECRETION [None]
  - INTUBATION [None]
  - KERATITIS [None]
  - LEUKOPENIA [None]
  - LIP EROSION [None]
  - MOUTH ULCERATION [None]
  - NAUSEA [None]
  - NIKOLSKY'S SIGN [None]
  - PLATELET COUNT DECREASED [None]
  - PNEUMONIA STAPHYLOCOCCAL [None]
  - PRODUCTIVE COUGH [None]
  - PYREXIA [None]
  - RASH MACULAR [None]
  - STEVENS-JOHNSON SYNDROME [None]
  - TRACHEOSTOMY [None]
